FAERS Safety Report 6322400-5 (Version None)
Quarter: 2009Q3

REPORT INFORMATION
  Report Type: 
  Country: None (occurrence: None)
  Receive Date: 20090824
  Receipt Date: 20090218
  Transmission Date: 20100115
  Serious: No
  Sender: FDA-Public Use
  Company Number: US-ABBOTT-09P-163-0503003-00

PATIENT
  Sex: Male

DRUGS (3)
  1. NIASPAN [Suspect]
     Indication: BLOOD CHOLESTEROL INCREASED
     Dates: start: 20090203, end: 20090205
  2. VITAMINS/NUTRIENTS [Concomitant]
     Indication: DRUG USE FOR UNKNOWN INDICATION
  3. TOPICAL HORMONE REPLACEMENT [Concomitant]
     Indication: DRUG USE FOR UNKNOWN INDICATION

REACTIONS (2)
  - ANGINA PECTORIS [None]
  - CARDIAC FLUTTER [None]
